FAERS Safety Report 7650130-6 (Version None)
Quarter: 2011Q3

REPORT INFORMATION
  Report Type: 
  Country: None (occurrence: None)
  Receive Date: 20110719
  Receipt Date: 20101104
  Transmission Date: 20111222
  Serious: Yes (Other)
  Sender: FDA-Public Use
  Company Number: 163-50794-10110789

PATIENT
  Age: 64 Year
  Sex: Male

DRUGS (7)
  1. ALOXI (PALONOSETRON HYDROCHLORIDE) (UNKNOWN) [Concomitant]
  2. VIDAZA [Suspect]
     Indication: MYELODYSPLASTIC SYNDROME
     Dosage: 150 MG, 5 DAYS A MONTH
     Route: 065
     Dates: start: 20100913
  3. FOLIC ACID (FOLIC ACID) (UNKNOWN) [Concomitant]
  4. SOLIRIS [Suspect]
     Indication: PAROXYSMAL NOCTURNAL HAEMOGLOBINURIA
     Dosage: 600 MG, WEEKLY, IV ; 900 MG, EVERY 2 WEEKS, IV
     Route: 042
     Dates: start: 20100217
  5. SOLIRIS [Suspect]
     Indication: PAROXYSMAL NOCTURNAL HAEMOGLOBINURIA
     Dosage: 600 MG, WEEKLY, IV ; 900 MG, EVERY 2 WEEKS, IV
     Route: 042
     Dates: start: 20100113, end: 20100203
  6. NEULASTA (PEGFILGRASTIM) (UNKNOWN) [Concomitant]
  7. RESTORIL (TEMAZEPAM) (UNKNOWN) [Concomitant]

REACTIONS (4)
  - WHITE BLOOD CELL COUNT DECREASED [None]
  - ANAEMIA [None]
  - PLATELET COUNT DECREASED [None]
  - FATIGUE [None]
